FAERS Safety Report 6380680-4 (Version None)
Quarter: 2009Q3

REPORT INFORMATION
  Report Type: 
  Country: None (occurrence: None)
  Receive Date: 20090929
  Receipt Date: 20090923
  Transmission Date: 20100115
  Serious: Yes (Other)
  Sender: FDA-Public Use
  Company Number: ES-ROXANE LABORATORIES, INC.-2009-RO-00996RO

PATIENT
  Age: 44 Year
  Sex: Male

DRUGS (7)
  1. CLARITHROMYCIN [Suspect]
     Indication: PNEUMONIA
  2. ZIDOVUDINE [Suspect]
     Indication: ANTIRETROVIRAL THERAPY
  3. AMOXICILLIN AND CLAVULANATE POTASSIUM [Suspect]
     Indication: PNEUMONIA HAEMOPHILUS
  4. LAMIVUDINE [Suspect]
     Indication: ANTIRETROVIRAL THERAPY
  5. EFAVIRENZ [Suspect]
     Indication: ANTIRETROVIRAL THERAPY
  6. TRIMETHOPRIM + SULFAMETHOXAZOLE [Suspect]
     Indication: PROPHYLAXIS
  7. RIFAMPICIN [Suspect]
     Indication: PNEUMONIA

REACTIONS (1)
  - IMMUNE RECONSTITUTION SYNDROME [None]
